FAERS Safety Report 18415102 (Version 1)
Quarter: 2020Q4

REPORT INFORMATION
  Report Type: Spontaneous
  Country: US (occurrence: US)
  Receive Date: 20201022
  Receipt Date: 20201022
  Transmission Date: 20210114
  Serious: No
  Sender: FDA-Public Use
  Company Number: US-BRACCO-2020US03186

PATIENT
  Age: 78 Year
  Sex: Female

DRUGS (9)
  1. LEVOTHYROXINE. [Concomitant]
     Active Substance: LEVOTHYROXINE
     Indication: HYPOTHYROIDISM
     Dosage: 25 MCG
     Dates: start: 20200730, end: 20200730
  2. HYDROXYCHLOROQUINE [Concomitant]
     Active Substance: HYDROXYCHLOROQUINE
     Indication: ALOPECIA
     Dosage: 200 MG
     Dates: start: 20200730, end: 20200730
  3. VARIBAR THIN LIQUID [Suspect]
     Active Substance: BARIUM SULFATE
     Indication: BARIUM SWALLOW
     Dosage: APPROXIMATELY 200 ML
     Route: 048
     Dates: start: 20200730, end: 20200730
  4. ATORVASTATIN [Concomitant]
     Active Substance: ATORVASTATIN
     Indication: HYPERTENSION
     Dosage: 10 MG
     Dates: start: 20200730, end: 20200730
  5. VARIBAR HONEY [Suspect]
     Active Substance: BARIUM SULFATE
     Indication: BARIUM SWALLOW
     Dosage: UNK UNK, SINGLE
     Route: 048
     Dates: start: 20200730, end: 20200730
  6. VARIBAR NECTAR [Suspect]
     Active Substance: BARIUM SULFATE
     Indication: BARIUM SWALLOW
     Dosage: APPROXIMATELY 60 ML
     Dates: start: 20200730, end: 20200730
  7. VARIBAR PUDDING [Suspect]
     Active Substance: BARIUM SULFATE
     Indication: BARIUM SWALLOW
     Dosage: 4 SPOONFUL
     Route: 048
     Dates: start: 20200730, end: 20200730
  8. VITAMIN D                          /00107901/ [Concomitant]
     Active Substance: ERGOCALCIFEROL
     Dosage: TABLET
     Dates: start: 20200730, end: 20200730
  9. OMEPRAZOLE. [Concomitant]
     Active Substance: OMEPRAZOLE
     Indication: GASTROOESOPHAGEAL REFLUX DISEASE
     Dosage: 20 MG
     Dates: start: 20200730, end: 20200730

REACTIONS (1)
  - Hair colour changes [Recovering/Resolving]

NARRATIVE: CASE EVENT DATE: 20200731
